FAERS Safety Report 7709468-6 (Version None)
Quarter: 2011Q3

REPORT INFORMATION
  Report Type: 
  Country: None (occurrence: None)
  Receive Date: 20110825
  Receipt Date: 20110818
  Transmission Date: 20111222
  Serious: Yes (Hospitalization)
  Sender: FDA-Public Use
  Company Number: DE-PFIZER INC-2010041552

PATIENT
  Age: 20 Year
  Sex: Female

DRUGS (5)
  1. ALCOHOL [Suspect]
     Indication: PRODUCT USED FOR UNKNOWN INDICATION
  2. PANTOPRAZOLE [Suspect]
     Indication: PRODUCT USED FOR UNKNOWN INDICATION
     Dosage: 100 MG, SINGLE (5X20 MG AT ONCE)
     Route: 048
     Dates: start: 20100328, end: 20100328
  3. INDOMETACIN [Suspect]
     Indication: PRODUCT USED FOR UNKNOWN INDICATION
     Dosage: 12 X 50 MG (OR 20MG) ONCE
     Route: 048
     Dates: start: 20100328, end: 20100328
  4. ACETAMINOPHEN [Suspect]
     Indication: PRODUCT USED FOR UNKNOWN INDICATION
     Dosage: 2000 MG AT ONCE
     Route: 048
     Dates: start: 20100328, end: 20100328
  5. IBUPROFEN [Suspect]
     Indication: PRODUCT USED FOR UNKNOWN INDICATION
     Dosage: 4 DF, SINGLE
     Route: 048
     Dates: start: 20100328, end: 20100328

REACTIONS (3)
  - SUICIDE ATTEMPT [None]
  - MULTIPLE DRUG OVERDOSE [None]
  - VOMITING [None]
